FAERS Safety Report 5509968-3 (Version None)
Quarter: 2007Q4

REPORT INFORMATION
  Report Type: 
  Country: None (occurrence: None)
  Receive Date: 20071107
  Receipt Date: 20071107
  Transmission Date: 20080405
  Serious: Yes (Disabling)
  Sender: FDA-Public Use
  Company Number: None

PATIENT
  Sex: Male
  Weight: 88.4514 kg

DRUGS (3)
  1. LEVITRA [Suspect]
     Indication: ERECTILE DYSFUNCTION
     Dosage: 10MG LEVITRA APPROX ONCE A MONTH ORAL
     Route: 048
     Dates: start: 20031229, end: 20040225
  2. VIAGRA [Suspect]
     Indication: ERECTILE DYSFUNCTION
     Dosage: 50MG VIAGRA APPROX ONCE A MONTH ORAL
     Route: 048
     Dates: start: 20010101, end: 20040225
  3. STRATTERA [Concomitant]

REACTIONS (5)
  - DEAFNESS NEUROSENSORY [None]
  - DEAFNESS UNILATERAL [None]
  - DIZZINESS [None]
  - FISTULA [None]
  - VERTIGO [None]
